FAERS Safety Report 17018054 (Version 1)
Quarter: 2019Q4

REPORT INFORMATION
  Report Type: Spontaneous
  Country: US (occurrence: US)
  Receive Date: 20191007
  Receipt Date: 20191007
  Transmission Date: 20200122
  Serious: No
  Sender: FDA-Public Use
  Company Number: None

PATIENT
  Age: 50 Year
  Sex: Female

DRUGS (1)
  1. RASUVO [Suspect]
     Active Substance: METHOTREXATE SODIUM
     Indication: RHEUMATOID ARTHRITIS
     Dosage: ?          OTHER DOSE:20MG/0.4ML;?
     Route: 058
     Dates: start: 20190208, end: 20191003

REACTIONS (4)
  - Victim of spousal abuse [None]
  - Asthenia [None]
  - Upper limb fracture [None]
  - Blister [None]
